FAERS Safety Report 5753761-3 (Version None)
Quarter: 2008Q2

REPORT INFORMATION
  Report Type: 
  Country: None (occurrence: None)
  Receive Date: 20080530
  Receipt Date: 20080525
  Transmission Date: 20081010
  Serious: Yes (Hospitalization, Other)
  Sender: FDA-Public Use
  Company Number: IL-ABBOTT-08P-082-0453500-00

PATIENT
  Sex: Male

DRUGS (8)
  1. KALETRA [Suspect]
     Indication: HIV INFECTION
     Dates: start: 20080413
  2. ISONIAZID [Concomitant]
     Indication: TUBERCULOSIS
     Dates: start: 20080307
  3. PYRAZINAMIDE [Concomitant]
     Indication: TUBERCULOSIS
     Dates: start: 20080307
  4. DAPSONE [Concomitant]
     Indication: ANTIFUNGAL PROPHYLAXIS
     Dates: start: 20080416
  5. MYABUTOL [Concomitant]
     Indication: TUBERCULOSIS
     Dates: start: 20080308
  6. RIFABUTIN [Concomitant]
     Indication: TUBERCULOSIS
     Dates: start: 20080320
  7. PYRIDOXINE HYDROCHLORIDE [Concomitant]
     Indication: TUBERCULOSIS
     Dates: start: 20080307
  8. TRUVADA [Concomitant]
     Indication: HIV INFECTION
     Dates: start: 20080413

REACTIONS (6)
  - ANAEMIA [None]
  - CLOSTRIDIAL INFECTION [None]
  - GENERAL PHYSICAL HEALTH DETERIORATION [None]
  - NAUSEA [None]
  - PERITONEAL EFFUSION [None]
  - VOMITING [None]
